FAERS Safety Report 5289024-2 (Version None)
Quarter: 2007Q2

REPORT INFORMATION
  Report Type: 
  Country: None (occurrence: None)
  Receive Date: 20070405
  Receipt Date: 20070326
  Transmission Date: 20071010
  Serious: Yes (Other)
  Sender: FDA-Public Use
  Company Number: JP-PFIZER INC-2007024564

PATIENT
  Age: 69 Year
  Sex: Male

DRUGS (5)
  1. UNASYN [Suspect]
     Dosage: TEXT:4.5 G
     Route: 042
     Dates: start: 20070302, end: 20070304
  2. FUTHAN [Suspect]
     Route: 042
     Dates: start: 20070228, end: 20070228
  3. MIRACLID [Suspect]
     Dosage: TEXT:150000 UNITS
     Route: 042
     Dates: start: 20070302, end: 20070319
  4. SULPERAZON [Concomitant]
     Route: 042
     Dates: start: 20070228, end: 20070301
  5. FOY [Concomitant]
     Route: 042
     Dates: start: 20070228, end: 20070319

REACTIONS (1)
  - PANCREATITIS [None]
